FAERS Safety Report 18473553 (Version 1)
Quarter: 2020Q4

REPORT INFORMATION
  Report Type: Spontaneous
  Country: US (occurrence: US)
  Receive Date: 20201106
  Receipt Date: 20201106
  Transmission Date: 20210114
  Serious: No
  Sender: FDA-Public Use
  Company Number: None

PATIENT
  Age: 66 Year
  Sex: Male
  Weight: 99 kg

DRUGS (5)
  1. CARVEDILOL. [Concomitant]
     Active Substance: CARVEDILOL
  2. VARDENAFIL [Concomitant]
     Active Substance: VARDENAFIL HYDROCHLORIDE
  3. CIMETIDINE [Concomitant]
     Active Substance: CIMETIDINE
  4. OPTIRAY 350 [Suspect]
     Active Substance: IOVERSOL
     Indication: SCAN WITH CONTRAST
     Dates: start: 20201102, end: 20201102
  5. ATORVASTATIN [Concomitant]
     Active Substance: ATORVASTATIN

REACTIONS (3)
  - Pruritus [None]
  - Erythema [None]
  - Discomfort [None]

NARRATIVE: CASE EVENT DATE: 20201102
